FAERS Safety Report 4600993-3 (Version None)
Quarter: 2005Q1

REPORT INFORMATION
  Report Type: 
  Country: None (occurrence: None)
  Receive Date: 20050307
  Receipt Date: 20050307
  Transmission Date: 20050727
  Serious: No
  Sender: FDA-Public Use
  Company Number: None

PATIENT
  Sex: Female
  Weight: 147.8726 kg

DRUGS (24)
  1. GABAPENTIN [Suspect]
     Indication: DIABETIC NEUROPATHY
     Dosage: 600 MG 1 PO TID
     Route: 048
     Dates: start: 20050225
  2. FUROSEMIDE [Concomitant]
  3. SPIRONOLACTONE [Concomitant]
  4. NITROSTAT [Concomitant]
  5. NITROGLYCERIN [Concomitant]
  6. KLOR-CON [Concomitant]
  7. PLAVIX [Concomitant]
  8. ECOTRIN [Concomitant]
  9. TOPROL-XL [Concomitant]
  10. ZOCOR [Concomitant]
  11. NEURONTIN [Concomitant]
  12. HYDROCODONE BITARTRATE + ACETAMINOPHEN [Concomitant]
  13. GLUCOPHAGE [Concomitant]
  14. AVANDIA [Concomitant]
  15. AMARYL [Concomitant]
  16. FLUOXETINE [Concomitant]
  17. IBUPROFEN [Concomitant]
  18. PREVACID [Concomitant]
  19. AMBIEN [Concomitant]
  20. RESTORIL [Concomitant]
  21. SUR-O-LAX [Concomitant]
  22. PROMETHAZINE [Concomitant]
  23. DROPERIDOL [Concomitant]
  24. ALBUTEROL [Concomitant]

REACTIONS (3)
  - HEADACHE [None]
  - PHARMACEUTICAL PRODUCT COMPLAINT [None]
  - SPEECH DISORDER [None]
